FAERS Safety Report 4333840-8 (Version None)
Quarter: 2004Q2

REPORT INFORMATION
  Report Type: 
  Country: None (occurrence: None)
  Receive Date: 20040402
  Receipt Date: 20040325
  Transmission Date: 20050107
  Serious: Yes (Death)
  Sender: FDA-Public Use
  Company Number: 2004-03-1928

PATIENT
  Sex: Male

DRUGS (2)
  1. PEG-INTRON [Suspect]
     Indication: HEPATITIS C
     Dosage: SUBCUTANEOUS
     Route: 058
     Dates: start: 20040301
  2. REBETOL [Suspect]
     Indication: HEPATITIS C
     Dosage: ORAL
     Route: 048
     Dates: start: 20040301

REACTIONS (4)
  - ANOXIC ENCEPHALOPATHY [None]
  - BLOOD CREATINE PHOSPHOKINASE INCREASED [None]
  - CARDIAC ARREST [None]
  - COMA [None]
